FAERS Safety Report 4724203-1 (Version None)
Quarter: 2005Q3

REPORT INFORMATION
  Report Type: 
  Country: None (occurrence: None)
  Receive Date: 20050725
  Receipt Date: 20050211
  Transmission Date: 20060218
  Serious: Yes (Hospitalization, Disabling)
  Sender: FDA-Public Use
  Company Number: US-MERCK-0502USA01510

PATIENT
  Age: 55 Year
  Sex: Female

DRUGS (5)
  1. VYTORIN [Suspect]
     Indication: BLOOD CHOLESTEROL INCREASED
     Route: 048
     Dates: start: 20041101, end: 20050101
  2. NEURONTIN [Concomitant]
     Route: 065
  3. BACLOFEN [Concomitant]
     Route: 065
  4. ZEBETA [Concomitant]
     Route: 065
  5. [THERAPY UNSPECIFIED] [Concomitant]
     Route: 065

REACTIONS (2)
  - CEREBRAL DISORDER [None]
  - PARANEOPLASTIC SYNDROME [None]
